FAERS Safety Report 12403831 (Version 1)
Quarter: 2016Q2

REPORT INFORMATION
  Report Type: Report from Study
  Country: US (occurrence: US)
  Receive Date: 20160525
  Receipt Date: 20160525
  Transmission Date: 20160815
  Serious: Yes (Other)
  Sender: FDA-Public Use
  Company Number: PHEH2016US012731

PATIENT
  Sex: Female

DRUGS (1)
  1. LETROZOLE. [Suspect]
     Active Substance: LETROZOLE
     Indication: BREAST CANCER METASTATIC
     Route: 048
     Dates: start: 201404, end: 201509

REACTIONS (4)
  - Recurrent cancer [Unknown]
  - Breast cancer metastatic [Unknown]
  - Drug ineffective [Unknown]
  - Malignant neoplasm progression [Unknown]
